FAERS Safety Report 12588188 (Version 2)
Quarter: 2016Q3

REPORT INFORMATION
  Report Type: Spontaneous
  Country: US (occurrence: US)
  Receive Date: 20160725
  Receipt Date: 20160819
  Transmission Date: 20161109
  Serious: Yes (Hospitalization)
  Sender: FDA-Public Use
  Company Number: US-KASTLE THERAPEUTICS, LLC-2016KAS000003

PATIENT
  Sex: Female

DRUGS (2)
  1. NIACIN. [Concomitant]
     Active Substance: NIACIN
     Indication: PRODUCT USED FOR UNKNOWN INDICATION
     Route: 065
  2. KYNAMRO [Suspect]
     Active Substance: MIPOMERSEN SODIUM
     Indication: PRODUCT USED FOR UNKNOWN INDICATION
     Route: 065
     Dates: start: 201505

REACTIONS (4)
  - Pain in jaw [Unknown]
  - Oropharyngeal pain [Unknown]
  - Muscle spasms [Unknown]
  - Hepatic enzyme increased [Unknown]

NARRATIVE: CASE EVENT DATE: 2016
